FAERS Safety Report 10625913 (Version 1)
Quarter: 2014Q4

REPORT INFORMATION
  Report Type: Spontaneous
  Country: US (occurrence: US)
  Receive Date: 20141204
  Receipt Date: 20141204
  Transmission Date: 20150529
  Serious: Yes (Hospitalization)
  Sender: FDA-Public Use
  Company Number: US-JNJFOC-20141118041

PATIENT
  Age: 65 Year
  Sex: Female
  Weight: 77.11 kg

DRUGS (9)
  1. HYDROXYCHLOROQUINE [Suspect]
     Active Substance: HYDROXYCHLOROQUINE
     Indication: PRODUCT USED FOR UNKNOWN INDICATION
     Route: 065
     Dates: end: 201407
  2. DURAGESIC [Suspect]
     Active Substance: FENTANYL
     Indication: CROHN^S DISEASE
     Route: 062
  3. DURAGESIC [Suspect]
     Active Substance: FENTANYL
     Indication: CROHN^S DISEASE
     Route: 062
     Dates: start: 2010, end: 2011
  4. DURAGESIC [Suspect]
     Active Substance: FENTANYL
     Indication: CROHN^S DISEASE
     Route: 062
     Dates: start: 2011, end: 201406
  5. DURAGESIC [Suspect]
     Active Substance: FENTANYL
     Indication: CROHN^S DISEASE
     Route: 062
     Dates: start: 201406
  6. DURAGESIC [Suspect]
     Active Substance: FENTANYL
     Indication: CROHN^S DISEASE
     Route: 062
     Dates: start: 2010, end: 2010
  7. DURAGESIC [Suspect]
     Active Substance: FENTANYL
     Indication: CROHN^S DISEASE
     Route: 062
  8. DURAGESIC [Suspect]
     Active Substance: FENTANYL
     Indication: CROHN^S DISEASE
     Route: 062
     Dates: end: 2010
  9. DURAGESIC [Suspect]
     Active Substance: FENTANYL
     Indication: CROHN^S DISEASE
     Route: 062
     Dates: start: 2011, end: 2011

REACTIONS (6)
  - Crohn^s disease [Unknown]
  - Abdominal adhesions [Recovered/Resolved]
  - Intestinal perforation [Unknown]
  - Product quality issue [Unknown]
  - Abdominal pain [Recovered/Resolved]
  - Adverse event [Recovered/Resolved]

NARRATIVE: CASE EVENT DATE: 2010
